FAERS Safety Report 5594645-3 (Version None)
Quarter: 2008Q1

REPORT INFORMATION
  Report Type: 
  Country: None (occurrence: None)
  Receive Date: 20080117
  Receipt Date: 20080104
  Transmission Date: 20080703
  Serious: Yes (Hospitalization)
  Sender: FDA-Public Use
  Company Number: BR-AMGEN-US255090

PATIENT
  Sex: Female
  Weight: 40 kg

DRUGS (5)
  1. ENBREL [Suspect]
     Indication: RHEUMATOID ARTHRITIS
     Route: 058
     Dates: start: 20071023
  2. METHOTREXATE [Concomitant]
     Indication: RHEUMATOID ARTHRITIS
     Route: 048
  3. IBUPROFEN [Concomitant]
     Indication: RHEUMATOID ARTHRITIS
     Route: 048
     Dates: start: 20051101
  4. METICORTEN [Concomitant]
     Indication: RHEUMATOID ARTHRITIS
     Route: 048
     Dates: start: 20041101
  5. HYDROXYCHLOROQUINE [Concomitant]
     Indication: RHEUMATOID ARTHRITIS
     Route: 048
     Dates: start: 20031101

REACTIONS (15)
  - ALOPECIA [None]
  - CONDITION AGGRAVATED [None]
  - DRY EYE [None]
  - ERYTHEMA [None]
  - HYPERSENSITIVITY [None]
  - INJECTION SITE ERYTHEMA [None]
  - INJECTION SITE PRURITUS [None]
  - OEDEMA PERIPHERAL [None]
  - PAIN IN EXTREMITY [None]
  - PRURITUS [None]
  - SWELLING [None]
  - SWELLING FACE [None]
  - SYSTEMIC LUPUS ERYTHEMATOSUS [None]
  - UNEVALUABLE EVENT [None]
  - WEIGHT DECREASED [None]
